FAERS Safety Report 9882296 (Version 2)
Quarter: 2014Q2

REPORT INFORMATION
  Report Type: Spontaneous
  Country: US (occurrence: US)
  Receive Date: 20140207
  Receipt Date: 20140529
  Transmission Date: 20141212
  Serious: Yes (Death, Hospitalization)
  Sender: FDA-Public Use
  Company Number: US-GLAXOSMITHKLINE-A1031509A

PATIENT
  Sex: Female

DRUGS (1)
  1. AVANDIA [Suspect]
     Indication: DIABETES MELLITUS
     Dosage: 4MG PER DAY
     Route: 048
     Dates: start: 20050708, end: 20070802

REACTIONS (6)
  - Cardiac failure congestive [Fatal]
  - Myocardial infarction [Fatal]
  - Pulmonary oedema [Unknown]
  - Coronary arterial stent insertion [Unknown]
  - Atrial fibrillation [Unknown]
  - Coronary artery disease [Fatal]
